FAERS Safety Report 4927794-0 (Version None)
Quarter: 2006Q1

REPORT INFORMATION
  Report Type: 
  Country: None (occurrence: None)
  Receive Date: 20060222
  Receipt Date: 20060208
  Transmission Date: 20060701
  Serious: Yes (Other)
  Sender: FDA-Public Use
  Company Number: A-US2005-11185

PATIENT
  Age: 72 Year
  Sex: Female
  Weight: 89.8 kg

DRUGS (17)
  1. TRACLEER [Suspect]
     Indication: PULMONARY HYPERTENSION
     Dosage: SEE IMAGE
     Route: 048
     Dates: start: 20050926, end: 20051023
  2. TRACLEER [Suspect]
     Indication: PULMONARY HYPERTENSION
     Dosage: SEE IMAGE
     Route: 048
     Dates: start: 20051024, end: 20051130
  3. TRACLEER [Suspect]
     Indication: PULMONARY HYPERTENSION
     Dosage: SEE IMAGE
     Route: 048
     Dates: start: 20060119, end: 20060206
  4. ZOCOR [Suspect]
     Dates: start: 20050901, end: 20051130
  5. METFORMIN HCL [Suspect]
     Indication: DIABETES MELLITUS NON-INSULIN-DEPENDENT
     Dates: start: 20050901, end: 20051101
  6. OXYGEN (OXYGEN) [Concomitant]
  7. DIURETICS [Concomitant]
  8. COZAAR [Concomitant]
  9. ZETIA [Concomitant]
  10. SINGULAIR [Concomitant]
  11. LASIX [Concomitant]
  12. ASPIRIN [Concomitant]
  13. GLYBURIDE [Concomitant]
  14. ZYRTEC [Concomitant]
  15. GLUCOSAMINE W/CHONDROITIN SULFATES (ASCORBIC ACID, CHONDROITIN SULFATE [Concomitant]
  16. BENADRYL [Concomitant]
  17. ROSIGLITAZONE [Concomitant]

REACTIONS (10)
  - ALANINE AMINOTRANSFERASE INCREASED [None]
  - ASPARTATE AMINOTRANSFERASE INCREASED [None]
  - ASTHENIA [None]
  - BLOOD ALKALINE PHOSPHATASE INCREASED [None]
  - DIABETES MELLITUS INADEQUATE CONTROL [None]
  - EYELID OEDEMA [None]
  - FEELING ABNORMAL [None]
  - NASAL CONGESTION [None]
  - OEDEMA PERIPHERAL [None]
  - RHINORRHOEA [None]
